FAERS Safety Report 8345177 (Version 3)
Quarter: 2014Q1

REPORT INFORMATION
  Report Type: Spontaneous
  Country: GB (occurrence: GB)
  Receive Date: 20120120
  Receipt Date: 20140116
  Transmission Date: 20141002
  Serious: Yes (Hospitalization, Disabling, Other)
  Sender: FDA-Public Use
  Company Number: GB-PFIZER INC-2012011594

PATIENT
  Age: 81 Year
  Sex: Male
  Weight: 61.7 kg

DRUGS (8)
  1. GABAPENTIN [Suspect]
     Indication: DIABETIC NEUROPATHY
     Dosage: 100 MG, 3X/DAY
     Route: 048
     Dates: start: 20110630, end: 20110630
  2. CLARITHROMYCIN [Concomitant]
     Dosage: UNK
     Dates: start: 20111221, end: 20111228
  3. DIGOXIN [Concomitant]
     Dosage: UNK
     Dates: start: 20111212
  4. LAXIDO [Concomitant]
     Dosage: UNK
     Dates: start: 20111006, end: 20111007
  5. LAXIDO [Concomitant]
     Dosage: UNK
     Dates: start: 20111116, end: 20111117
  6. LAXIDO [Concomitant]
     Dosage: UNK
     Dates: start: 20111207, end: 20111208
  7. METFORMIN [Concomitant]
     Dosage: UNK
     Dates: start: 20110919, end: 20120104
  8. WARFARIN SODIUM [Concomitant]
     Dosage: UNK
     Dates: start: 20110919, end: 20120104

REACTIONS (15)
  - Cerebral infarction [Unknown]
  - Cerebrovascular accident [Unknown]
  - Confusional state [Recovered/Resolved]
  - Sedation [Unknown]
  - Thinking abnormal [Not Recovered/Not Resolved]
  - Victim of crime [Not Recovered/Not Resolved]
  - Fatigue [Recovered/Resolved]
  - Vomiting [Recovered/Resolved]
  - Pyrexia [Recovered/Resolved]
  - Bradycardia [Recovered/Resolved]
  - Hypotension [Recovered/Resolved]
  - Headache [Recovered/Resolved]
  - Speech disorder [Unknown]
  - Mental impairment [Unknown]
  - Amnesia [Unknown]
